FAERS Safety Report 20135656 (Version 1)
Quarter: 2021Q4

REPORT INFORMATION
  Report Type: Spontaneous
  Country: US (occurrence: None)
  Receive Date: 20211201
  Receipt Date: 20211201
  Transmission Date: 20220303
  Serious: Yes (Hospitalization)
  Sender: FDA-Public Use
  Company Number: None

PATIENT
  Age: 75 Year
  Sex: Male
  Weight: 103.87 kg

DRUGS (1)
  1. CASIRIVIMAB\IMDEVIMAB [Suspect]
     Active Substance: CASIRIVIMAB\IMDEVIMAB
     Indication: Upper respiratory tract infection
     Dosage: OTHER QUANTITY : 600/600MG;?FREQUENCY : ONCE;?
     Route: 042
     Dates: start: 20211122, end: 20211122

REACTIONS (11)
  - Chills [None]
  - Wheezing [None]
  - Oxygen saturation decreased [None]
  - Heart rate increased [None]
  - Diarrhoea [None]
  - Incontinence [None]
  - Body temperature increased [None]
  - Stridor [None]
  - Pyrexia [None]
  - Cough [None]
  - Tachycardia [None]

NARRATIVE: CASE EVENT DATE: 20211122
